FAERS Safety Report 13998204 (Version 1)
Quarter: 2017Q3

REPORT INFORMATION
  Report Type: Spontaneous
  Country: US (occurrence: None)
  Receive Date: 20170921
  Receipt Date: 20170921
  Transmission Date: 20171128
  Serious: Yes (Hospitalization)
  Sender: FDA-Public Use
  Company Number: None

PATIENT
  Age: 78 Year
  Sex: Male
  Weight: 106.8 kg

DRUGS (1)
  1. SUTENT [Suspect]
     Active Substance: SUNITINIB MALATE
     Indication: RENAL CANCER
     Dosage: 25MG QD X4WKS + 2WKS OFF BY MOUTH
     Route: 048
     Dates: start: 20170407

REACTIONS (1)
  - Large intestinal haemorrhage [None]

NARRATIVE: CASE EVENT DATE: 20170630
